FAERS Safety Report 16490101 (Version 1)
Quarter: 2019Q3

REPORT INFORMATION
  Report Type: Spontaneous
  Country: US (occurrence: US)
  Receive Date: 20190627
  Receipt Date: 20190627
  Transmission Date: 20191004
  Serious: No
  Sender: FDA-Public Use
  Company Number: None

PATIENT
  Age: 61 Year
  Sex: Female
  Weight: 66.15 kg

DRUGS (10)
  1. D [Concomitant]
  2. MULTIVITAMIN [Concomitant]
     Active Substance: VITAMINS
  3. MESALAMINE. [Suspect]
     Active Substance: MESALAMINE
     Indication: COLITIS ULCERATIVE
     Dosage: ?          QUANTITY:1 TABLET(S);?
     Route: 048
  4. CRANBERRY PILL [Concomitant]
     Active Substance: CRANBERRY
  5. IBUPROFEN 400MG [Concomitant]
     Active Substance: IBUPROFEN
  6. TRIAMCINOLONE OINTMENT STEROID CREAM [Concomitant]
     Active Substance: TRIAMCINOLONE
  7. FLONASE [Concomitant]
     Active Substance: FLUTICASONE PROPIONATE
  8. VITAMIN E [Concomitant]
     Active Substance: .ALPHA.-TOCOPHEROL
  9. OMEGA 3 [Concomitant]
     Active Substance: OMEGA-3 FATTY ACIDS
  10. PROBIOTIC [Concomitant]
     Active Substance: PROBIOTICS NOS

REACTIONS (3)
  - Drug ineffective [None]
  - Haematochezia [None]
  - Product substitution issue [None]

NARRATIVE: CASE EVENT DATE: 20190410
